FAERS Safety Report 15772327 (Version 4)
Quarter: 2019Q1

REPORT INFORMATION
  Report Type: Report from Study
  Country: US (occurrence: US)
  Receive Date: 20181228
  Receipt Date: 20190322
  Transmission Date: 20190417
  Serious: Yes (Hospitalization, Other)
  Sender: FDA-Public Use
  Company Number: US-ACTELION-A-NJ2018-174540

PATIENT
  Age: 31 Year
  Sex: Female
  Weight: 72.56 kg

DRUGS (4)
  1. UPTRAVI [Suspect]
     Active Substance: SELEXIPAG
     Indication: PULMONARY HYPERTENSION
     Dosage: 600 MCG, BID
     Route: 048
  2. TRACLEER [Suspect]
     Active Substance: BOSENTAN
     Indication: PULMONARY HYPERTENSION
     Dosage: 125 MG, UNK
     Route: 048
  3. UPTRAVI [Suspect]
     Active Substance: SELEXIPAG
     Dosage: 200 MCG, BID
     Route: 048
  4. UPTRAVI [Suspect]
     Active Substance: SELEXIPAG
     Dosage: 400 MCG, BID
     Route: 048

REACTIONS (14)
  - Product dose omission [Unknown]
  - Myalgia [Recovering/Resolving]
  - Dehydration [Recovering/Resolving]
  - Gallbladder disorder [Unknown]
  - Headache [Unknown]
  - Palpitations [Unknown]
  - Drug intolerance [Unknown]
  - Flushing [Unknown]
  - Hospitalisation [Unknown]
  - Diarrhoea [Recovering/Resolving]
  - Pain [Unknown]
  - Vomiting [Recovering/Resolving]
  - Dizziness [Unknown]
  - Syncope [Unknown]

NARRATIVE: CASE EVENT DATE: 20181212
